FAERS Safety Report 4556095-8 (Version None)
Quarter: 2005Q1

REPORT INFORMATION
  Report Type: 
  Country: None (occurrence: None)
  Receive Date: 20050119
  Receipt Date: 20050110
  Transmission Date: 20050727
  Serious: Yes (Death)
  Sender: FDA-Public Use
  Company Number: US-JNJFOC-20041106376

PATIENT
  Age: 84 Year
  Sex: Male
  Weight: 67.1 kg

DRUGS (1)
  1. REMICADE [Suspect]
     Indication: POLYARTHRITIS
     Route: 042

REACTIONS (3)
  - CHRONIC OBSTRUCTIVE PULMONARY DISEASE [None]
  - GASTROOESOPHAGEAL REFLUX DISEASE [None]
  - LARYNGEAL OEDEMA [None]
